FAERS Safety Report 5551502-6 (Version None)
Quarter: 2007Q4

REPORT INFORMATION
  Report Type: 
  Country: None (occurrence: None)
  Receive Date: 20071212
  Receipt Date: 20071204
  Transmission Date: 20080405
  Serious: Yes (Hospitalization)
  Sender: FDA-Public Use
  Company Number: GB-AVENTIS-200715832EU

PATIENT
  Age: 94 Year
  Sex: Female
  Weight: 66.2 kg

DRUGS (5)
  1. RAMIPRIL [Suspect]
     Route: 048
     Dates: start: 20071106, end: 20071113
  2. FRUSEMIDE [Suspect]
     Route: 048
     Dates: start: 20071106
  3. CALCICHEW D3 [Concomitant]
     Dosage: DOSE: 2 DF
     Route: 048
  4. LANSOPRAZOLE [Concomitant]
     Route: 048
  5. LEVOTHYROXINE SODIUM [Concomitant]
     Indication: THYROXINE FREE DECREASED
     Route: 048

REACTIONS (1)
  - ANGIOEDEMA [None]
